FAERS Safety Report 8535993 (Version 3)
Quarter: 2012Q4

REPORT INFORMATION
  Report Type: Report from Study
  Country: DE (occurrence: DE)
  Receive Date: 20120426
  Receipt Date: 20121127
  Transmission Date: 20130627
  Serious: Yes (Life-Threatening, Hospitalization)
  Sender: FDA-Public Use
  Company Number: DE-ROCHE-1060668

PATIENT
  Age: 81 Year
  Sex: Female
  Weight: 54.5 kg

DRUGS (13)
  1. METHOXY POLYETHYLENE GLYCOL-EPOETIN BETA [Suspect]
     Indication: NEPHROGENIC ANAEMIA
     Dosage: last dose prior to SAE 17/Feb/2012
     Route: 042
     Dates: start: 20120113, end: 20120302
  2. METHOXY POLYETHYLENE GLYCOL-EPOETIN BETA [Suspect]
     Dosage: last dose prior to SAE 02/Mar/2012
     Route: 042
     Dates: start: 20120413
  3. ASS100 [Suspect]
     Indication: PRODUCT USED FOR UNKNOWN INDICATION
     Route: 065
  4. DIGITOXIN [Suspect]
     Indication: PRODUCT USED FOR UNKNOWN INDICATION
     Route: 065
  5. TORASEMIDE [Suspect]
     Indication: PRODUCT USED FOR UNKNOWN INDICATION
     Route: 065
  6. DIGIMERCK [Concomitant]
     Route: 065
  7. CONCOR [Concomitant]
     Route: 065
  8. AMLODIPIN [Concomitant]
     Route: 065
  9. RAMIPRIL [Concomitant]
     Route: 065
  10. L-THYROXINE [Concomitant]
     Route: 065
  11. PANTOZOL [Concomitant]
     Route: 065
  12. MARCUMAR [Concomitant]
     Route: 065
  13. BISOPROLOL [Concomitant]
     Route: 065

REACTIONS (5)
  - Bronchitis [Recovered/Resolved]
  - Hypertension [Recovered/Resolved]
  - Cardiac disorder [Recovered/Resolved]
  - Cerebrovascular accident [Recovering/Resolving]
  - Haemoglobin decreased [Recovered/Resolved]
